FAERS Safety Report 4855073-9 (Version None)
Quarter: 2005Q4

REPORT INFORMATION
  Report Type: 
  Country: None (occurrence: None)
  Receive Date: 20051125
  Receipt Date: 20041030
  Transmission Date: 20060501
  Serious: Yes (Hospitalization)
  Sender: FDA-Public Use
  Company Number: US-JNJFOC-20041100755

PATIENT
  Sex: Male

DRUGS (1)
  1. LEVAQUIN [Suspect]
     Dosage: 500 MG, ORAL
     Route: 048

REACTIONS (2)
  - BLOOD URINE PRESENT [None]
  - NAUSEA [None]
